FAERS Safety Report 17257090 (Version 5)
Quarter: 2024Q3

REPORT INFORMATION
  Report Type: Spontaneous
  Country: AU (occurrence: AU)
  Receive Date: 20200110
  Receipt Date: 20240813
  Transmission Date: 20241017
  Serious: No
  Sender: TOLMAR
  Company Number: AU-TOLMAR, INC.-19AU000697

PATIENT
  Age: 81 Year
  Sex: Male

DRUGS (2)
  1. ELIGARD [Suspect]
     Active Substance: LEUPROLIDE ACETATE
     Indication: Prostate cancer
     Dosage: 22.5 MG, Q 3 MONTH
     Route: 058
  2. UNSPECIFIED INGREDIENT [Suspect]
     Active Substance: UNSPECIFIED INGREDIENT
     Indication: Product used for unknown indication
     Dosage: UNK
     Dates: start: 202307

REACTIONS (5)
  - Mood swings [Unknown]
  - COVID-19 [Recovering/Resolving]
  - Hot flush [Unknown]
  - Lethargy [Not Recovered/Not Resolved]
  - Fatigue [Not Recovered/Not Resolved]

NARRATIVE: CASE EVENT DATE: 20230707
